FAERS Safety Report 7269346-6 (Version None)
Quarter: 2011Q1

REPORT INFORMATION
  Report Type: 
  Country: None (occurrence: None)
  Receive Date: 20110202
  Receipt Date: 20110119
  Transmission Date: 20110831
  Serious: Yes (Death, Hospitalization)
  Sender: FDA-Public Use
  Company Number: FR-CELGENEUS-056-21880-10122014

PATIENT
  Sex: Male
  Weight: 71 kg

DRUGS (1)
  1. REVLIMID [Suspect]
     Route: 048
     Dates: start: 20100330, end: 20100419

REACTIONS (3)
  - FEBRILE BONE MARROW APLASIA [None]
  - B-CELL TYPE ACUTE LEUKAEMIA [None]
  - GENERAL PHYSICAL HEALTH DETERIORATION [None]
